FAERS Safety Report 19074981 (Version 1)
Quarter: 2021Q1

REPORT INFORMATION
  Report Type: Spontaneous
  Country: KR (occurrence: KR)
  Receive Date: 20210330
  Receipt Date: 20210330
  Transmission Date: 20210420
  Serious: Yes (Hospitalization)
  Sender: FDA-Public Use
  Company Number: KR-ASTRAZENECA-2021A201627

PATIENT
  Sex: Male

DRUGS (3)
  1. BUDESONIDE/FORMOTEROL [Suspect]
     Active Substance: BUDESONIDE\FORMOTEROL
     Dosage: 160/4.5, AS NEEDED UNKNOWN
     Route: 055
     Dates: start: 20200914
  2. TIOTROPIUM [Concomitant]
     Active Substance: TIOTROPIUM
  3. BUDESONIDE/FORMOTEROL [Suspect]
     Active Substance: BUDESONIDE\FORMOTEROL
     Dosage: 320/9,AS NEEDED UNKNOWN
     Route: 055
     Dates: start: 20190827

REACTIONS (1)
  - Varicose vein [Unknown]
